FAERS Safety Report 9085895 (Version 1)
Quarter: 2013Q1

REPORT INFORMATION
  Report Type: Spontaneous
  Country: IT (occurrence: IT)
  Receive Date: 20130131
  Receipt Date: 20130131
  Transmission Date: 20140127
  Serious: Yes (Hospitalization)
  Sender: FDA-Public Use
  Company Number: IT-TEVA-382655ISR

PATIENT
  Age: 10 Year
  Sex: Male

DRUGS (3)
  1. CEFTRIAXONE RATIOPHARM [Suspect]
     Indication: ENCEPHALITIS
     Dosage: 2 GRAM DAILY; 1 G/3.5 ML POWDER AND SOLVENT FOR INJECTABLE SOLUTION
     Route: 030
     Dates: start: 20121223, end: 20121223
  2. CEFTRIAXONE RATIOPHARM [Interacting]
     Dosage: 1 GRAM DAILY;
     Route: 042
     Dates: start: 20121224, end: 20121231
  3. ACICLOVIR RECORDATI [Interacting]
     Dosage: 1200 MILLIGRAM DAILY; 250 MG POWDER FOR INJECTABLE SOLUTION
     Route: 042
     Dates: start: 20121224, end: 20130102

REACTIONS (2)
  - Renal failure acute [Recovered/Resolved]
  - Drug interaction [Recovered/Resolved]
